FAERS Safety Report 7017825-9 (Version None)
Quarter: 2010Q3

REPORT INFORMATION
  Report Type: 
  Country: None (occurrence: None)
  Receive Date: 20100927
  Receipt Date: 20100927
  Transmission Date: 20110219
  Serious: Yes (Hospitalization)
  Sender: FDA-Public Use
  Company Number: None

PATIENT
  Sex: Male
  Weight: 83.7 kg

DRUGS (4)
  1. FLUOROURACIL [Suspect]
     Dosage: 1760 MG
     Dates: end: 20100907
  2. BEVACIZUMAB (RHUMAB VEGF) [Suspect]
     Dosage: 1410 MG
     Dates: end: 20100907
  3. LEUCOVORIN CALCIUM [Suspect]
     Dosage: 100 MG
     Dates: end: 20100907
  4. ELOXATIN [Suspect]
     Dosage: 555 MG
     Dates: end: 20100907

REACTIONS (6)
  - BLOOD MAGNESIUM DECREASED [None]
  - CLOSTRIDIUM TEST POSITIVE [None]
  - CULTURE URINE POSITIVE [None]
  - DISORIENTATION [None]
  - ESCHERICHIA INFECTION [None]
  - HAEMOGLOBIN DECREASED [None]
